FAERS Safety Report 7883425-1 (Version None)
Quarter: 2011Q4

REPORT INFORMATION
  Report Type: 
  Country: None (occurrence: None)
  Receive Date: 20111102
  Receipt Date: 20111026
  Transmission Date: 20120403
  Serious: Yes (Other)
  Sender: FDA-Public Use
  Company Number: US-JNJFOC-20111012032

PATIENT
  Age: 5 Decade
  Sex: Female

DRUGS (2)
  1. INVEGA SUSTENNA [Suspect]
     Indication: PRODUCT USED FOR UNKNOWN INDICATION
     Route: 030
     Dates: start: 20110501
  2. ANTITHYROID DRUG, UNSPECIFIED [Concomitant]
     Indication: THYROID DISORDER
     Route: 065

REACTIONS (3)
  - THERAPY CESSATION [None]
  - THYROID DISORDER [None]
  - SUICIDE ATTEMPT [None]
